FAERS Safety Report 24631889 (Version 1)
Quarter: 2024Q4

REPORT INFORMATION
  Report Type: Spontaneous
  Country: US (occurrence: None)
  Receive Date: 20241118
  Receipt Date: 20241118
  Transmission Date: 20250114
  Serious: Yes (Disabling)
  Sender: Public
  Company Number: None

PATIENT
  Age: 29 Year
  Sex: Female
  Weight: 59.4 kg

DRUGS (4)
  1. EMGALITY [Suspect]
     Active Substance: GALCANEZUMAB-GNLM
     Indication: Migraine
     Dates: start: 20240622, end: 20240822
  2. QULIPTA [Suspect]
     Active Substance: ATOGEPANT
  3. heather birth control [Concomitant]
  4. VITAMINS [Concomitant]
     Active Substance: VITAMINS

REACTIONS (7)
  - Constipation [None]
  - Decreased appetite [None]
  - Weight decreased [None]
  - Dizziness [None]
  - Abdominal pain [None]
  - Panic attack [None]
  - Injection site reaction [None]

NARRATIVE: CASE EVENT DATE: 20241115
